FAERS Safety Report 14541814 (Version 1)
Quarter: 2018Q1

REPORT INFORMATION
  Report Type: Spontaneous
  Country: CH (occurrence: CH)
  Receive Date: 20180216
  Receipt Date: 20180216
  Transmission Date: 20180509
  Serious: Yes (Hospitalization)
  Sender: FDA-Public Use
  Company Number: CH-TEVA-2018-CH-856507

PATIENT
  Age: 76 Year
  Sex: Female
  Weight: 75.3 kg

DRUGS (10)
  1. CONCOR 2,5 MG LACKTABLETTEN [Concomitant]
     Route: 048
  2. ZOLDORM [Concomitant]
     Active Substance: ZOLPIDEM TARTRATE
     Route: 048
  3. COVERSUM N COMBI [Suspect]
     Active Substance: INDAPAMIDE\PERINDOPRIL ARGININE
     Route: 048
     Dates: end: 20180116
  4. VASCORD [Concomitant]
     Route: 048
  5. ASPIRIN CARDIO 100 FILMTABLETTEN [Concomitant]
     Active Substance: ASPIRIN
     Route: 048
  6. PANTOZOL [Suspect]
     Active Substance: PANTOPRAZOLE SODIUM
     Route: 048
     Dates: end: 20180116
  7. CRESTOR [Concomitant]
     Active Substance: ROSUVASTATIN CALCIUM
     Route: 048
  8. LETROZOL TEVA [Concomitant]
     Active Substance: LETROZOLE
     Route: 048
  9. CITALOPRAM MEPHA 20 DISPERSIBLE [Suspect]
     Active Substance: CITALOPRAM HYDROBROMIDE
     Route: 048
  10. XANAX 0,5 MG TABLETTEN [Concomitant]
     Route: 048

REACTIONS (3)
  - Hypokalaemia [Recovered/Resolved]
  - Hypomagnesaemia [Recovered/Resolved]
  - Hyponatraemia [Recovering/Resolving]

NARRATIVE: CASE EVENT DATE: 20180116
